FAERS Safety Report 21721410 (Version 2)
Quarter: 2022Q4

REPORT INFORMATION
  Report Type: Spontaneous
  Country: US (occurrence: US)
  Receive Date: 20221213
  Receipt Date: 20221220
  Transmission Date: 20230112
  Serious: Yes (Other)
  Sender: FDA-Public Use
  Company Number: US-ViiV Healthcare Limited-US2022AMR184140

PATIENT

DRUGS (3)
  1. DOVATO [Suspect]
     Active Substance: DOLUTEGRAVIR SODIUM\LAMIVUDINE
     Indication: Product used for unknown indication
     Dosage: UNK UNK, QD
  2. PREZISTA [Concomitant]
     Active Substance: DARUNAVIR ETHANOLATE
     Indication: Product used for unknown indication
     Dosage: UNK
  3. DESCOVY [Concomitant]
     Active Substance: EMTRICITABINE\TENOFOVIR ALAFENAMIDE FUMARATE
     Indication: Product used for unknown indication
     Dosage: UNK

REACTIONS (2)
  - Pathogen resistance [Recovered/Resolved]
  - Treatment failure [Unknown]
